FAERS Safety Report 25884371 (Version 2)
Quarter: 2025Q4

REPORT INFORMATION
  Report Type: Spontaneous
  Country: US (occurrence: US)
  Receive Date: 20251006
  Receipt Date: 20251106
  Transmission Date: 20260117
  Serious: Yes (Death, Life-Threatening, Hospitalization, Disabling, Other)
  Sender: MERCK SHARP & DOHME LLC
  Company Number: US-009507513-2334461

PATIENT
  Age: 54 Year
  Sex: Female

DRUGS (2)
  1. PREVYMIS [Suspect]
     Active Substance: LETERMOVIR
     Indication: Prophylaxis
     Route: 048
  2. PREVYMIS [Suspect]
     Active Substance: LETERMOVIR
     Indication: Prophylaxis
     Route: 042

REACTIONS (7)
  - Graft versus host disease [Fatal]
  - Hypotension [Fatal]
  - Cytomegalovirus colitis [Fatal]
  - Anaemia [Fatal]
  - Enteritis [Fatal]
  - Disease complication [Fatal]
  - Treatment failure [Fatal]
